FAERS Safety Report 7808762-8 (Version None)
Quarter: 2011Q4

REPORT INFORMATION
  Report Type: 
  Country: None (occurrence: None)
  Receive Date: 20111007
  Receipt Date: 20110927
  Transmission Date: 20120403
  Serious: Yes (Disabling)
  Sender: FDA-Public Use
  Company Number: GB-ACCORD-010817

PATIENT
  Age: 79 Year
  Sex: Female
  Weight: 83 kg

DRUGS (3)
  1. ATENOLOL [Concomitant]
  2. FELODIPINE [Concomitant]
  3. SIMVASTATIN [Suspect]
     Indication: PRODUCT USED FOR UNKNOWN INDICATION
     Dates: start: 20110824

REACTIONS (2)
  - MYALGIA [None]
  - SLEEP DISORDER [None]
